FAERS Safety Report 8775840 (Version 1)
Quarter: 2012Q4

REPORT INFORMATION
  Report Type: 
  Country: US (occurrence: US)
  Receive Date: 20120910
  Receipt Date: 20120910
  Transmission Date: 20130627
  Serious: No
  Sender: FDA-Public Use
  Company Number: US-PFIZER INC-2012218739

PATIENT
  Sex: Female

DRUGS (2)
  1. PREMARIN [Suspect]
     Dosage: UNK, daily
     Route: 067
     Dates: start: 201206
  2. PREMARIN [Suspect]
     Dosage: UNK, 3x/week
     Route: 067
     Dates: start: 201207

REACTIONS (3)
  - Metrorrhagia [Unknown]
  - Breast swelling [Unknown]
  - Abdominal distension [Unknown]
